FAERS Safety Report 8443733 (Version 3)
Quarter: 2013Q4

REPORT INFORMATION
  Report Type: Report from Study
  Country: BR (occurrence: BR)
  Receive Date: 20120306
  Receipt Date: 20131011
  Transmission Date: 20140711
  Serious: Yes (Other)
  Sender: FDA-Public Use
  Company Number: PHHY2012BR018602

PATIENT
  Age: 75 Year
  Sex: Female

DRUGS (1)
  1. DIOVAN HCT [Suspect]
     Indication: HYPERTENSION
     Dosage: 1 DF (160/12.5 MG), DAILY
     Route: 048

REACTIONS (12)
  - Atrial fibrillation [Not Recovered/Not Resolved]
  - Wound [Recovered/Resolved]
  - Varicose vein [Recovered/Resolved]
  - Osteoarthritis [Unknown]
  - Condition aggravated [Unknown]
  - Hypothyroidism [Unknown]
  - Confusional state [Unknown]
  - Emotional disorder [Unknown]
  - Local swelling [Recovered/Resolved]
  - Back pain [Recovering/Resolving]
  - Anxiety [Unknown]
  - Hypertension [Unknown]
